FAERS Safety Report 16616946 (Version 2)
Quarter: 2020Q1

REPORT INFORMATION
  Report Type: Spontaneous
  Country: FR (occurrence: FR)
  Receive Date: 20190723
  Receipt Date: 20200116
  Transmission Date: 20200409
  Serious: Yes (Hospitalization)
  Sender: FDA-Public Use
  Company Number: FR-ZYDUS-038912

PATIENT
  Age: 37 Year
  Sex: Male
  Weight: 84 kg

DRUGS (7)
  1. RIVOTRIL [Suspect]
     Active Substance: CLONAZEPAM
     Indication: NEURALGIA
     Route: 048
     Dates: start: 20190523, end: 20190616
  2. NOVORAPID [Concomitant]
     Active Substance: INSULIN ASPART
  3. RAMIPRIL. [Suspect]
     Active Substance: RAMIPRIL
     Indication: HYPERTENSION
     Route: 048
     Dates: start: 20190523, end: 20190616
  4. VERSATIS [Concomitant]
     Active Substance: LIDOCAINE
  5. TUJEO [Concomitant]
  6. ATORVASTATINE [Concomitant]
     Active Substance: ATORVASTATIN
  7. TEGRETOL [Suspect]
     Active Substance: CARBAMAZEPINE
     Indication: NEURALGIA
     Route: 048
     Dates: start: 20190523, end: 20190616

REACTIONS (3)
  - Rash erythematous [Recovered/Resolved]
  - Eosinophilia [Recovered/Resolved]
  - Pyrexia [Recovered/Resolved]

NARRATIVE: CASE EVENT DATE: 20190614
